FAERS Safety Report 16614317 (Version 2)
Quarter: 2020Q3

REPORT INFORMATION
  Report Type: Spontaneous
  Country: DE (occurrence: DE)
  Receive Date: 20190723
  Receipt Date: 20200811
  Transmission Date: 20201102
  Serious: Yes (Hospitalization, Other)
  Sender: FDA-Public Use
  Company Number: DE-AUROBINDO-AUR-APL-2019-040585

PATIENT
  Age: 13 Year
  Sex: Male
  Weight: 31.7 kg

DRUGS (1)
  1. AMIODARONE [Suspect]
     Active Substance: AMIODARONE
     Indication: ATRIAL FLUTTER
     Dosage: 6 MILLIGRAM/KILOGRAM, DAILY
     Route: 065

REACTIONS (2)
  - Pulmonary mass [Recovering/Resolving]
  - Pigmentation disorder [Recovered/Resolved]
